FAERS Safety Report 6767752-7 (Version None)
Quarter: 2010Q2

REPORT INFORMATION
  Report Type: 
  Country: None (occurrence: None)
  Receive Date: 20100610
  Receipt Date: 20100602
  Transmission Date: 20101027
  Serious: Yes (Death)
  Sender: FDA-Public Use
  Company Number: 2010EU002215

PATIENT
  Age: 63 Year
  Sex: Female

DRUGS (2)
  1. TACROLIMUS [Suspect]
     Indication: LIVER TRANSPLANT
     Dates: end: 20100210
  2. BELATACEPT (BELATACEPT) [Suspect]
     Indication: LIVER TRANSPLANT
     Dates: end: 20090923

REACTIONS (4)
  - DEHYDRATION [None]
  - DRUG LEVEL INCREASED [None]
  - DRUG TOXICITY [None]
  - SOMNOLENCE [None]
